FAERS Safety Report 5154973-2 (Version None)
Quarter: 2006Q4

REPORT INFORMATION
  Report Type: 
  Country: None (occurrence: None)
  Receive Date: 20061120
  Receipt Date: 20061120
  Transmission Date: 20070319
  Serious: Yes (Hospitalization)
  Sender: FDA-Public Use
  Company Number: None

PATIENT
  Age: 65 Year
  Sex: Female

DRUGS (11)
  1. ALIMTA [Suspect]
     Indication: LUNG NEOPLASM MALIGNANT
     Dosage: 500 MG/M2  Q 2WEEKS  IV DRIP
     Route: 041
     Dates: start: 20061004, end: 20061023
  2. GEMCITABINE [Suspect]
     Indication: LUNG NEOPLASM MALIGNANT
     Dosage: 1500 MG/M2   Q2WEEKS  IV DRIP
     Route: 041
     Dates: start: 20061004, end: 20061023
  3. VITAMIN D [Concomitant]
  4. TAGAMET [Concomitant]
  5. ADVAIR DISKUS 100/50 [Concomitant]
  6. FOLIC ACID [Concomitant]
  7. PREMARIN [Concomitant]
  8. AMBIEN [Concomitant]
  9. XANAX [Concomitant]
  10. VICODIN XS [Concomitant]
  11. CIPROFLOXACIN [Concomitant]

REACTIONS (8)
  - ABDOMINAL PAIN [None]
  - CHRONIC OBSTRUCTIVE PULMONARY DISEASE [None]
  - DYSURIA [None]
  - FATIGUE [None]
  - FEBRILE NEUTROPENIA [None]
  - INFECTION [None]
  - MALAISE [None]
  - URINARY TRACT INFECTION [None]
